FAERS Safety Report 18998107 (Version 1)
Quarter: 2021Q1

REPORT INFORMATION
  Report Type: Spontaneous
  Country: US (occurrence: US)
  Receive Date: 20210311
  Receipt Date: 20210311
  Transmission Date: 20210420
  Serious: No
  Sender: FDA-Public Use
  Company Number: US-PFIZER INC-2021206339

PATIENT
  Age: 50 Year
  Sex: Female
  Weight: 108.84 kg

DRUGS (1)
  1. IBRANCE [Suspect]
     Active Substance: PALBOCICLIB
     Indication: BREAST NEOPLASM
     Dosage: 125 MG, CYCLIC (1 DAILY FOR 21 DAYS)
     Route: 048

REACTIONS (2)
  - Joint stiffness [Unknown]
  - Arthralgia [Unknown]
